FAERS Safety Report 4695290-4 (Version None)
Quarter: 2005Q2

REPORT INFORMATION
  Report Type: 
  Country: None (occurrence: None)
  Receive Date: 20050608
  Receipt Date: 20041216
  Transmission Date: 20051028
  Serious: Yes (Other)
  Sender: FDA-Public Use
  Company Number: 389671

PATIENT

DRUGS (2)
  1. ACCUTANE [Suspect]
     Dosage: 20 MG DAILY
     Dates: start: 20041015, end: 20041115
  2. ORTHO TRI-CYCLEN [Concomitant]

REACTIONS (1)
  - ABORTION INDUCED [None]
